FAERS Safety Report 25810396 (Version 2)
Quarter: 2025Q4

REPORT INFORMATION
  Report Type: Spontaneous
  Country: JP (occurrence: JP)
  Receive Date: 20250917
  Receipt Date: 20251012
  Transmission Date: 20260117
  Serious: Yes (Death, Hospitalization, Other)
  Sender: JOHNSON AND JOHNSON
  Company Number: JP-JNJFOC-20250924424

PATIENT
  Age: 77 Year
  Sex: Male

DRUGS (2)
  1. ERLEADA [Suspect]
     Active Substance: APALUTAMIDE
     Indication: Prostate cancer
     Route: 048
     Dates: start: 20250624, end: 20250829
  2. DEGARELIX [Suspect]
     Active Substance: DEGARELIX
     Indication: Prostate cancer
     Dosage: DOSE UNKNOWN
     Route: 058
     Dates: start: 2025

REACTIONS (4)
  - Prostate cancer [Fatal]
  - Fatigue [Unknown]
  - Hepatic function abnormal [Unknown]
  - Neutropenia [Unknown]

NARRATIVE: CASE EVENT DATE: 20250829
